FAERS Safety Report 8902573 (Version 1)
Quarter: 2012Q4

REPORT INFORMATION
  Report Type: 
  Country: AU (occurrence: AU)
  Receive Date: 20121112
  Receipt Date: 20121112
  Transmission Date: 20130627
  Serious: Yes (Other)
  Sender: FDA-Public Use
  Company Number: AU-ASTRAZENECA-2012SE71419

PATIENT
  Age: 50 Year
  Sex: Female

DRUGS (10)
  1. SEROQUEL XR [Suspect]
     Indication: POST-TRAUMATIC STRESS DISORDER
     Route: 048
     Dates: start: 20120419, end: 20120517
  2. SEROQUEL XR [Suspect]
     Indication: MAJOR DEPRESSION
     Route: 048
     Dates: start: 20120419, end: 20120517
  3. SEROQUEL XR [Suspect]
     Indication: POST-TRAUMATIC STRESS DISORDER
     Route: 048
     Dates: start: 20120517, end: 20120525
  4. SEROQUEL XR [Suspect]
     Indication: MAJOR DEPRESSION
     Route: 048
     Dates: start: 20120517, end: 20120525
  5. TRICYCLIC ANTIDEPRESSANTS [Concomitant]
  6. DOTHIEPIN [Concomitant]
     Indication: MAJOR DEPRESSION
     Route: 048
  7. METFORMIN [Concomitant]
     Indication: TYPE 2 DIABETES MELLITUS
     Route: 048
  8. PREMARIN [Concomitant]
     Route: 048
  9. THYROXINE [Concomitant]
     Indication: HYPOTHYROIDISM
     Route: 048
  10. ROSUVASTATIN [Concomitant]
     Indication: BLOOD CHOLESTEROL INCREASED
     Route: 048

REACTIONS (1)
  - Oromandibular dystonia [Recovered/Resolved]
